FAERS Safety Report 4501090-8 (Version None)
Quarter: 2004Q4

REPORT INFORMATION
  Report Type: 
  Country: None (occurrence: None)
  Receive Date: 20041109
  Receipt Date: 20041026
  Transmission Date: 20050328
  Serious: Yes (Hospitalization)
  Sender: FDA-Public Use
  Company Number: US_030493742

PATIENT
  Age: 19 Year
  Sex: Female
  Weight: 99 kg

DRUGS (6)
  1. STRATTERA [Suspect]
     Dosage: 100 MG/1 IN THE MORNING
     Dates: start: 20030314
  2. ZOLOFT [Concomitant]
  3. RISPERDAL [Concomitant]
  4. SEROQUEL [Concomitant]
  5. MELATONIN [Concomitant]
  6. DEPAKOTE [Concomitant]

REACTIONS (12)
  - ABNORMAL BEHAVIOUR [None]
  - AGGRESSION [None]
  - ALANINE AMINOTRANSFERASE INCREASED [None]
  - ASPARTATE AMINOTRANSFERASE INCREASED [None]
  - CANDIDIASIS [None]
  - HEAD BANGING [None]
  - INSOMNIA [None]
  - LIPASE INCREASED [None]
  - PATIENT RESTRAINT [None]
  - PYREXIA [None]
  - SELF INJURIOUS BEHAVIOUR [None]
  - STRESS SYMPTOMS [None]
